FAERS Safety Report 9220095 (Version 1)
Quarter: 2013Q2

REPORT INFORMATION
  Report Type: Spontaneous
  Country: US (occurrence: None)
  Receive Date: 20130408
  Receipt Date: 20130408
  Transmission Date: 20140414
  Serious: Yes (Disabling)
  Sender: FDA-Public Use
  Company Number: None

PATIENT
  Age: 52 Year
  Sex: Female
  Weight: 90.72 kg

DRUGS (1)
  1. ANASTROZOLE [Suspect]
     Indication: BREAST CANCER
     Dosage: 1 MG 1 DAILY PO
     Route: 048
     Dates: start: 20110901, end: 20111201

REACTIONS (5)
  - Trigger finger [None]
  - Trigger finger [None]
  - Local swelling [None]
  - Musculoskeletal stiffness [None]
  - Cubital tunnel syndrome [None]
